FAERS Safety Report 24456283 (Version 2)
Quarter: 2024Q4

REPORT INFORMATION
  Report Type: Spontaneous
  Country: HU (occurrence: HU)
  Receive Date: 20241017
  Receipt Date: 20241018
  Transmission Date: 20250115
  Serious: No
  Sender: ROCHE
  Company Number: HU-ROCHE-3493743

PATIENT
  Age: 69 Year
  Sex: Male

DRUGS (5)
  1. RITUXIMAB [Suspect]
     Active Substance: RITUXIMAB
     Indication: Rheumatoid arthritis
     Route: 065
     Dates: start: 2009
  2. RITUXIMAB [Suspect]
     Active Substance: RITUXIMAB
     Route: 065
     Dates: start: 2022
  3. ABATACEPT [Concomitant]
     Active Substance: ABATACEPT
  4. INFLIXIMAB [Concomitant]
     Active Substance: INFLIXIMAB
  5. VORICONAZOLE [Concomitant]
     Active Substance: VORICONAZOLE

REACTIONS (3)
  - Hypogammaglobulinaemia [Recovering/Resolving]
  - Pneumocystis jirovecii infection [Recovering/Resolving]
  - Pneumonia [Recovering/Resolving]

NARRATIVE: CASE EVENT DATE: 20230301
